FAERS Safety Report 17401463 (Version 1)
Quarter: 2020Q1

REPORT INFORMATION
  Report Type: Spontaneous
  Country: US (occurrence: US)
  Receive Date: 20200209
  Receipt Date: 20200209
  Transmission Date: 20200409
  Serious: No
  Sender: FDA-Public Use
  Company Number: None

PATIENT
  Age: 38 Year
  Sex: Female
  Weight: 72 kg

DRUGS (2)
  1. LISINOPRIL 10 MG [Concomitant]
     Active Substance: LISINOPRIL
  2. ELURYNG [Suspect]
     Active Substance: ETHINYL ESTRADIOL\ETONOGESTREL
     Indication: CONTRACEPTION
     Dosage: ?          QUANTITY:1 1;OTHER FREQUENCY:ONCE A MONTH;?
     Route: 067
     Dates: start: 20200119, end: 20200209

REACTIONS (3)
  - Vulvovaginal pruritus [None]
  - Vulvovaginal discomfort [None]
  - Vaginal discharge [None]

NARRATIVE: CASE EVENT DATE: 20200127
